FAERS Safety Report 8427924-2 (Version None)
Quarter: 2012Q2

REPORT INFORMATION
  Report Type: 
  Country: None (occurrence: None)
  Receive Date: 20120611
  Receipt Date: 20120530
  Transmission Date: 20120825
  Serious: No
  Sender: FDA-Public Use
  Company Number: US-ASTRAZENECA-2012SE35182

PATIENT
  Age: 80 Year
  Sex: Female

DRUGS (1)
  1. SYMBICORT [Suspect]
     Indication: ASTHMA
     Dosage: 160/4.5 MCG,TWO PUFFS IN MORNING AND TWO PUFFS AT NIGHT, TWO TIMES A DAY
     Route: 055

REACTIONS (5)
  - WEIGHT INCREASED [None]
  - INCREASED APPETITE [None]
  - ALOPECIA [None]
  - GLAUCOMA [None]
  - OFF LABEL USE [None]
